FAERS Safety Report 6401151-2 (Version None)
Quarter: 2009Q4

REPORT INFORMATION
  Report Type: 
  Country: None (occurrence: None)
  Receive Date: 20091015
  Receipt Date: 20091013
  Transmission Date: 20100525
  Serious: Yes (Hospitalization)
  Sender: FDA-Public Use
  Company Number: US-B.I. PHARMACEUTICALS,INC./RIDGEFIELD-2009-BP-11126BP

PATIENT
  Sex: Female

DRUGS (6)
  1. SPIRIVA [Suspect]
     Indication: CHRONIC OBSTRUCTIVE PULMONARY DISEASE
     Dosage: 18 MCG
     Route: 055
     Dates: start: 20081101
  2. VANCOSIN [Concomitant]
     Dates: end: 20090927
  3. XIFAXAN [Concomitant]
     Dosage: 400 MG
     Dates: start: 20090928
  4. FERROUS SULFATE TAB [Concomitant]
     Dosage: 650 MG
  5. ADVAIR DISKUS 100/50 [Concomitant]
  6. ALBUTEROL WITH NEBULIZER [Concomitant]

REACTIONS (6)
  - CELLULITIS [None]
  - CLOSTRIDIAL INFECTION [None]
  - COLON CANCER [None]
  - LYMPHOEDEMA [None]
  - PULMONARY EMBOLISM [None]
  - THROMBOSIS IN DEVICE [None]
